FAERS Safety Report 6358057-7 (Version None)
Quarter: 2009Q3

REPORT INFORMATION
  Report Type: 
  Country: None (occurrence: None)
  Receive Date: 20090916
  Receipt Date: 20090908
  Transmission Date: 20100115
  Serious: Yes (Death, Hospitalization)
  Sender: FDA-Public Use
  Company Number: A0806398A

PATIENT
  Age: 68 Year
  Sex: Female

DRUGS (9)
  1. AVANDIA [Suspect]
     Route: 048
  2. METFORMIN HCL [Concomitant]
  3. METOPROLOL TARTRATE [Concomitant]
  4. VYTORIN [Concomitant]
  5. LEVOTHYROXINE SODIUM [Concomitant]
  6. AVAPRO [Concomitant]
  7. PREDNISONE [Concomitant]
  8. GLIPIZIDE [Concomitant]
  9. BACTRIM [Concomitant]

REACTIONS (4)
  - CORONARY ARTERY DISEASE [None]
  - HEPATIC ENCEPHALOPATHY [None]
  - MYOCARDIAL INFARCTION [None]
  - PULMONARY FIBROSIS [None]
